FAERS Safety Report 5756280-3 (Version None)
Quarter: 2008Q2

REPORT INFORMATION
  Report Type: 
  Country: None (occurrence: None)
  Receive Date: 20080602
  Receipt Date: 20080602
  Transmission Date: 20081010
  Serious: Yes (Death)
  Sender: FDA-Public Use
  Company Number: None

PATIENT
  Sex: Male
  Weight: 62.6871 kg

DRUGS (4)
  1. THYMOGLOBULIN [Suspect]
     Indication: MULTIPLE MYELOMA
     Dosage: 300 MG IV
     Route: 042
     Dates: start: 20070511
  2. THYMOGLOBULIN [Suspect]
     Indication: MULTIPLE MYELOMA
     Dosage: 300 MG IV
     Route: 042
     Dates: start: 20070512
  3. THYMOGLOBULIN [Suspect]
     Indication: MULTIPLE MYELOMA
     Dosage: 300 MG IV
     Route: 042
     Dates: start: 20070513
  4. THYMOGLOBULIN [Suspect]
     Indication: MULTIPLE MYELOMA
     Dosage: 300 MG IV
     Route: 042
     Dates: start: 20070514

REACTIONS (1)
  - ASTHENIA [None]
